FAERS Safety Report 13585160 (Version 4)
Quarter: 2017Q3

REPORT INFORMATION
  Report Type: Spontaneous
  Country: KR (occurrence: KR)
  Receive Date: 20170526
  Receipt Date: 20170802
  Transmission Date: 20171127
  Serious: Yes (Other)
  Sender: FDA-Public Use
  Company Number: KR-009507513-1702KOR009903

PATIENT
  Age: 73 Year
  Sex: Male
  Weight: 51.7 kg

DRUGS (75)
  1. EMEND (FOSAPREPITANT DIMEGLUMINE) [Suspect]
     Active Substance: FOSAPREPITANT DIMEGLUMINE
     Dosage: 150 MG, ONCE
     Route: 042
     Dates: start: 20161213, end: 20161213
  2. EMEND (FOSAPREPITANT DIMEGLUMINE) [Suspect]
     Active Substance: FOSAPREPITANT DIMEGLUMINE
     Dosage: 150 MG, ONCE
     Route: 042
     Dates: start: 20170307, end: 20170307
  3. EMEND (FOSAPREPITANT DIMEGLUMINE) [Suspect]
     Active Substance: FOSAPREPITANT DIMEGLUMINE
     Dosage: 150 MG, ONCE
     Route: 042
     Dates: start: 20170428, end: 20170428
  4. GEMZAR [Concomitant]
     Active Substance: GEMCITABINE HYDROCHLORIDE
     Dosage: 1500 MG, ONCE, CYCLE 6
     Route: 042
     Dates: start: 20170314, end: 20170314
  5. CISPLATIN. [Concomitant]
     Active Substance: CISPLATIN
     Dosage: 112 MG, ONCE, CYCLE 1
     Route: 042
     Dates: start: 20170428, end: 20170428
  6. DEXAMETHASONE SODIUM PHOSPHATE. [Concomitant]
     Active Substance: DEXAMETHASONE SODIUM PHOSPHATE
     Indication: PROPHYLAXIS OF NAUSEA AND VOMITING
     Dosage: 12 MG, ONCE
     Route: 042
     Dates: start: 20161101, end: 20161101
  7. DEXAMETHASONE SODIUM PHOSPHATE. [Concomitant]
     Active Substance: DEXAMETHASONE SODIUM PHOSPHATE
     Dosage: 10 MG, ONCE
     Route: 042
     Dates: start: 20170117, end: 20170117
  8. DEXAMETHASONE. [Concomitant]
     Active Substance: DEXAMETHASONE
     Dosage: 4 MG, BID
     Route: 048
     Dates: start: 20161214, end: 20161216
  9. SANCUSO [Concomitant]
     Active Substance: GRANISETRON
     Indication: PROPHYLAXIS OF NAUSEA AND VOMITING
     Dosage: PATCH: 80.2X66.6 MM2; 1 EA, QD
     Route: 062
     Dates: start: 20161031, end: 20161106
  10. XARELTO [Concomitant]
     Active Substance: RIVAROXABAN
     Indication: PULMONARY EMBOLISM
     Dosage: 15 MG, BID
     Route: 048
     Dates: start: 20161031, end: 20161120
  11. CURAN [Concomitant]
     Active Substance: RANITIDINE HYDROCHLORIDE
     Dosage: 150 MG, BID
     Route: 048
     Dates: start: 20161123, end: 20161125
  12. CURAN [Concomitant]
     Active Substance: RANITIDINE HYDROCHLORIDE
     Dosage: 150 MG, BID
     Route: 048
     Dates: start: 20170201, end: 20170203
  13. CURAN [Concomitant]
     Active Substance: RANITIDINE HYDROCHLORIDE
     Dosage: 150 MG, BID
     Route: 048
     Dates: start: 20170429, end: 20170429
  14. EMEND (FOSAPREPITANT DIMEGLUMINE) [Suspect]
     Active Substance: FOSAPREPITANT DIMEGLUMINE
     Dosage: 150 MG, ONCE
     Route: 042
     Dates: start: 20170110, end: 20170110
  15. GEMZAR [Concomitant]
     Active Substance: GEMCITABINE HYDROCHLORIDE
     Dosage: 1500 MG, ONCE; CYCLE: 1
     Route: 042
     Dates: start: 20161108, end: 20161108
  16. GEMZAR [Concomitant]
     Active Substance: GEMCITABINE HYDROCHLORIDE
     Dosage: 1500 MG, ONCE; CYCLE:2
     Route: 042
     Dates: start: 20161129, end: 20161129
  17. GEMZAR [Concomitant]
     Active Substance: GEMCITABINE HYDROCHLORIDE
     Dosage: 1500 MG, ONCE; CYCLE: 5
     Route: 042
     Dates: start: 20170207, end: 20170207
  18. CISPLATIN. [Concomitant]
     Active Substance: CISPLATIN
     Dosage: 109 MG, ONCE; CYCLE: 5
     Route: 042
     Dates: start: 20170131, end: 20170131
  19. DEXAMETHASONE SODIUM PHOSPHATE. [Concomitant]
     Active Substance: DEXAMETHASONE SODIUM PHOSPHATE
     Dosage: 12 MG, ONCE
     Route: 042
     Dates: start: 20170110, end: 20170110
  20. DEXAMETHASONE SODIUM PHOSPHATE. [Concomitant]
     Active Substance: DEXAMETHASONE SODIUM PHOSPHATE
     Dosage: 12 MG, ONCE
     Route: 042
     Dates: start: 20170131, end: 20170131
  21. DEXAMETHASONE SODIUM PHOSPHATE. [Concomitant]
     Active Substance: DEXAMETHASONE SODIUM PHOSPHATE
     Dosage: 10 MG, ONCE
     Route: 042
     Dates: start: 20161219, end: 20161219
  22. DEXAMETHASONE SODIUM PHOSPHATE. [Concomitant]
     Active Substance: DEXAMETHASONE SODIUM PHOSPHATE
     Dosage: 10 MG, ONCE
     Route: 042
     Dates: start: 20170207, end: 20170207
  23. DEXAMETHASONE. [Concomitant]
     Active Substance: DEXAMETHASONE
     Dosage: 4 MG, BID
     Route: 048
     Dates: start: 20161123, end: 20161125
  24. DEXAMETHASONE. [Concomitant]
     Active Substance: DEXAMETHASONE
     Dosage: 4 MG, BID
     Route: 048
     Dates: start: 20170429, end: 20170501
  25. SANCUSO [Concomitant]
     Active Substance: GRANISETRON
     Dosage: PATCH: 80.2X66.6 MM2; 1 EA, QD
     Route: 062
     Dates: start: 20161212, end: 20161218
  26. CENTRUM (MINERALS (UNSPECIFIED) (+) VITAMINS (UNSPECIFIED)) [Concomitant]
     Indication: PROPHYLAXIS
     Dosage: 1 TABLET, QD
     Route: 048
     Dates: start: 20161031, end: 20170327
  27. CURAN [Concomitant]
     Active Substance: RANITIDINE HYDROCHLORIDE
     Dosage: 50 MG, ONCE
     Route: 042
     Dates: start: 20170131, end: 20170131
  28. CURAN [Concomitant]
     Active Substance: RANITIDINE HYDROCHLORIDE
     Dosage: 50 MG, ONCE
     Route: 042
     Dates: start: 20170307, end: 20170307
  29. CURAN [Concomitant]
     Active Substance: RANITIDINE HYDROCHLORIDE
     Dosage: 150 MG, BID
     Dates: start: 20161214, end: 20161216
  30. GEMZAR [Concomitant]
     Active Substance: GEMCITABINE HYDROCHLORIDE
     Indication: LUNG NEOPLASM MALIGNANT
     Dosage: 1510 MG, ONCE; CYCLE: 1
     Route: 042
     Dates: start: 20161101, end: 20161101
  31. CISPLATIN. [Concomitant]
     Active Substance: CISPLATIN
     Indication: LUNG NEOPLASM MALIGNANT
     Dosage: 105 MG, ONCE; CYCLE: 1
     Route: 042
     Dates: start: 20161101, end: 20161101
  32. CISPLATIN. [Concomitant]
     Active Substance: CISPLATIN
     Dosage: 108 MG, ONCE; CYCLE: 4
     Route: 042
     Dates: start: 20170110, end: 20170110
  33. CISPLATIN. [Concomitant]
     Active Substance: CISPLATIN
     Dosage: 110 MG, ONCE, CYCLE 6
     Route: 042
     Dates: start: 20170307, end: 20170307
  34. DEXAMETHASONE SODIUM PHOSPHATE. [Concomitant]
     Active Substance: DEXAMETHASONE SODIUM PHOSPHATE
     Dosage: 10 MG, ONCE
     Route: 042
     Dates: start: 20161129, end: 20161129
  35. DEXAMETHASONE SODIUM PHOSPHATE. [Concomitant]
     Active Substance: DEXAMETHASONE SODIUM PHOSPHATE
     Dosage: 12 MG, ONCE
     Route: 042
     Dates: start: 20170307, end: 20170307
  36. DEXAMETHASONE. [Concomitant]
     Active Substance: DEXAMETHASONE
     Indication: PROPHYLAXIS OF NAUSEA AND VOMITING
     Dosage: 4 MG, BID
     Route: 048
     Dates: start: 20161102, end: 20161104
  37. DEXAMETHASONE. [Concomitant]
     Active Substance: DEXAMETHASONE
     Dosage: 4 MG, BID
     Route: 048
     Dates: start: 20170308, end: 20170310
  38. SANCUSO [Concomitant]
     Active Substance: GRANISETRON
     Dosage: PATCH: 80.2X66.6 MM2; 1 EA, QD
     Route: 062
     Dates: start: 20170130, end: 20170205
  39. CURAN [Concomitant]
     Active Substance: RANITIDINE HYDROCHLORIDE
     Dosage: 50 MG, ONCE
     Route: 042
     Dates: start: 20170110, end: 20170110
  40. EMEND (FOSAPREPITANT DIMEGLUMINE) [Suspect]
     Active Substance: FOSAPREPITANT DIMEGLUMINE
     Dosage: 150 MG, ONCE
     Route: 042
     Dates: start: 20161122, end: 20161122
  41. DEXAMETHASONE. [Concomitant]
     Active Substance: DEXAMETHASONE
     Dosage: 4 MG, BID
     Route: 048
     Dates: start: 20170111, end: 20170113
  42. LASIX [Concomitant]
     Active Substance: FUROSEMIDE
     Indication: PROPHYLAXIS
     Dosage: 20 MG, ONCE
     Route: 042
     Dates: start: 20161101, end: 20161101
  43. EMEND (FOSAPREPITANT DIMEGLUMINE) [Suspect]
     Active Substance: FOSAPREPITANT DIMEGLUMINE
     Dosage: 150 MG, ONCE
     Route: 042
     Dates: start: 20170131, end: 20170131
  44. GEMZAR [Concomitant]
     Active Substance: GEMCITABINE HYDROCHLORIDE
     Dosage: 1570 MG, ONCE; CYCLE: 5
     Route: 042
     Dates: start: 20170131, end: 20170131
  45. DEXAMETHASONE SODIUM PHOSPHATE. [Concomitant]
     Active Substance: DEXAMETHASONE SODIUM PHOSPHATE
     Dosage: 12 MG, ONCE
     Route: 042
     Dates: start: 20161122, end: 20161122
  46. DEXAMETHASONE. [Concomitant]
     Active Substance: DEXAMETHASONE
     Dosage: 4 MG, BID
     Route: 048
     Dates: start: 20170201, end: 20170203
  47. CURAN [Concomitant]
     Active Substance: RANITIDINE HYDROCHLORIDE
     Indication: PROPHYLAXIS
     Dosage: 50 MG, ONCE
     Route: 042
     Dates: start: 20161101, end: 20161101
  48. CURAN [Concomitant]
     Active Substance: RANITIDINE HYDROCHLORIDE
     Dosage: 50 MG, ONCE
     Route: 042
     Dates: start: 20161213, end: 20161213
  49. LASIX [Concomitant]
     Active Substance: FUROSEMIDE
     Dosage: 20 MG, ONCE
     Route: 042
     Dates: start: 20161213, end: 20161213
  50. LASIX [Concomitant]
     Active Substance: FUROSEMIDE
     Dosage: 20 MG, ONCE
     Route: 042
     Dates: start: 20170307, end: 20170307
  51. EMEND (FOSAPREPITANT DIMEGLUMINE) [Suspect]
     Active Substance: FOSAPREPITANT DIMEGLUMINE
     Indication: PROPHYLAXIS OF NAUSEA AND VOMITING
     Dosage: 150 MG, ONCE
     Route: 042
     Dates: start: 20161101, end: 20161101
  52. GEMZAR [Concomitant]
     Active Substance: GEMCITABINE HYDROCHLORIDE
     Dosage: 1530 MG, ONCE; CYCLE: 3
     Route: 042
     Dates: start: 20161213, end: 20161213
  53. GEMZAR [Concomitant]
     Active Substance: GEMCITABINE HYDROCHLORIDE
     Dosage: 1500 MG, ONCE; CYCLE: 4
     Route: 042
     Dates: start: 20170117, end: 20170117
  54. SANCUSO [Concomitant]
     Active Substance: GRANISETRON
     Dosage: PATCH: 80.2X66.6 MM2, 1 EA, QD
     Route: 062
     Dates: start: 20170427, end: 20170503
  55. CURAN [Concomitant]
     Active Substance: RANITIDINE HYDROCHLORIDE
     Dosage: 50 MG, ONCE
     Route: 042
     Dates: start: 20161122, end: 20161122
  56. CURAN [Concomitant]
     Active Substance: RANITIDINE HYDROCHLORIDE
     Indication: PROPHYLAXIS
     Dosage: 150 MG, BID
     Route: 048
     Dates: start: 20161102, end: 20161104
  57. CURAN [Concomitant]
     Active Substance: RANITIDINE HYDROCHLORIDE
     Dosage: 150 MG, BID
     Route: 048
     Dates: start: 20170111, end: 20170113
  58. CURAN [Concomitant]
     Active Substance: RANITIDINE HYDROCHLORIDE
     Dosage: 150 MG, BID
     Route: 048
     Dates: start: 20170308, end: 20170308
  59. LASIX [Concomitant]
     Active Substance: FUROSEMIDE
     Dosage: 20 MG, ONCE
     Route: 042
     Dates: start: 20170110, end: 20170110
  60. GEMZAR [Concomitant]
     Active Substance: GEMCITABINE HYDROCHLORIDE
     Dosage: 1520 MG, ONCE; CYCLE: 2
     Route: 042
     Dates: start: 20161122, end: 20161122
  61. GEMZAR [Concomitant]
     Active Substance: GEMCITABINE HYDROCHLORIDE
     Dosage: 1550 MG, ONCE; CYCLE: 4
     Route: 042
     Dates: start: 20170110, end: 20170110
  62. GEMZAR [Concomitant]
     Active Substance: GEMCITABINE HYDROCHLORIDE
     Dosage: 1580 MG, ONCE, CYLCE 6
     Route: 042
     Dates: start: 20170307, end: 20170307
  63. CISPLATIN. [Concomitant]
     Active Substance: CISPLATIN
     Dosage: 106 MG, ONCE; CYCLE: 2
     Route: 042
     Dates: start: 20161122, end: 20161122
  64. CISPLATIN. [Concomitant]
     Active Substance: CISPLATIN
     Dosage: 107 MG, ONCE; CYCLE: 3
     Route: 042
     Dates: start: 20161213, end: 20161213
  65. DEXAMETHASONE SODIUM PHOSPHATE. [Concomitant]
     Active Substance: DEXAMETHASONE SODIUM PHOSPHATE
     Dosage: 12 MG, ONCE
     Route: 042
     Dates: start: 20161213, end: 20161213
  66. SANCUSO [Concomitant]
     Active Substance: GRANISETRON
     Dosage: PATCH: 80.2X66.6 MM2, 1 EA, QD
     Route: 062
     Dates: start: 20170306, end: 20170312
  67. LASIX [Concomitant]
     Active Substance: FUROSEMIDE
     Dosage: 20 MG, ONCE
     Route: 042
     Dates: start: 20161122, end: 20161122
  68. LASIX [Concomitant]
     Active Substance: FUROSEMIDE
     Dosage: 20 MG, ONCE
     Route: 042
     Dates: start: 20170131, end: 20170131
  69. LASIX [Concomitant]
     Active Substance: FUROSEMIDE
     Dosage: 20 MG, ONCE
     Route: 042
     Dates: start: 20170428, end: 20170428
  70. GEMZAR [Concomitant]
     Active Substance: GEMCITABINE HYDROCHLORIDE
     Dosage: 1500 MG, ONCE; CYCLE: 3
     Dates: start: 20161219, end: 20161219
  71. DEXAMETHASONE SODIUM PHOSPHATE. [Concomitant]
     Active Substance: DEXAMETHASONE SODIUM PHOSPHATE
     Dosage: 10 MG, ONCE
     Route: 042
     Dates: start: 20161108, end: 20161108
  72. DEXAMETHASONE SODIUM PHOSPHATE. [Concomitant]
     Active Substance: DEXAMETHASONE SODIUM PHOSPHATE
     Dosage: 12 MG, ONCE
     Route: 042
     Dates: start: 20170428, end: 20170428
  73. SANCUSO [Concomitant]
     Active Substance: GRANISETRON
     Dosage: PATCH: 80.2X66.6 MM2; 1 EA, QD
     Route: 062
     Dates: start: 20161121, end: 20161127
  74. SANCUSO [Concomitant]
     Active Substance: GRANISETRON
     Dosage: PATCH: 80.2X66.6 MM2; 1 EA, QD
     Route: 062
     Dates: start: 20170109, end: 20170115
  75. CURAN [Concomitant]
     Active Substance: RANITIDINE HYDROCHLORIDE
     Dosage: 50 MG, ONCE
     Route: 042
     Dates: start: 20170428, end: 20170428

REACTIONS (3)
  - Pneumonia [Recovered/Resolved]
  - Cough [Recovered/Resolved]
  - Pneumonia [Recovered/Resolved]

NARRATIVE: CASE EVENT DATE: 20161102
